FAERS Safety Report 9496455 (Version 1)
Quarter: 2013Q3

REPORT INFORMATION
  Report Type: Spontaneous
  Country: US (occurrence: None)
  Receive Date: 20130829
  Receipt Date: 20130829
  Transmission Date: 20140515
  Serious: Yes (Hospitalization)
  Sender: FDA-Public Use
  Company Number: 150743

PATIENT
  Age: 58 Year
  Sex: Male
  Weight: 57.61 kg

DRUGS (1)
  1. LEUCOVORIN CALCIUM FOR INJ - 50MG [Suspect]
     Indication: PANCREATIC CARCINOMA
     Route: 042
     Dates: start: 20121126, end: 20121126

REACTIONS (1)
  - Pancreatitis [None]
